FAERS Safety Report 6295800-X (Version None)
Quarter: 2009Q3

REPORT INFORMATION
  Report Type: 
  Country: None (occurrence: None)
  Receive Date: 20090803
  Receipt Date: 20090803
  Transmission Date: 20100115
  Serious: No
  Sender: FDA-Public Use
  Company Number: None

PATIENT
  Age: 52 Year
  Sex: Female

DRUGS (6)
  1. REMICADE [Suspect]
     Dosage: 300MG IV INFUSION
     Route: 042
     Dates: start: 20070813, end: 20071231
  2. CYMBALTA [Suspect]
     Dosage: 60 MG PO, DAILY
     Route: 048
     Dates: end: 20080110
  3. ZETIA [Concomitant]
  4. CRESTOR [Concomitant]
  5. METHOTREXATE [Concomitant]
  6. LEUCOVORIN CALCIUM [Concomitant]

REACTIONS (6)
  - AUTOIMMUNE DISORDER [None]
  - CONTUSION [None]
  - HEPATIC FIBROSIS [None]
  - HEPATITIS ACUTE [None]
  - HEPATOCELLULAR INJURY [None]
  - LIVER INJURY [None]
